FAERS Safety Report 4917336-8 (Version None)
Quarter: 2006Q1

REPORT INFORMATION
  Report Type: 
  Country: None (occurrence: None)
  Receive Date: 20060221
  Receipt Date: 20050930
  Transmission Date: 20060701
  Serious: Yes (Hospitalization)
  Sender: FDA-Public Use
  Company Number: US-MERCK-0510USA01864

PATIENT
  Age: 48 Year
  Sex: Male
  Weight: 59 kg

DRUGS (11)
  1. VIOXX [Suspect]
     Indication: OSTEOARTHRITIS
     Route: 048
     Dates: start: 20001029, end: 20020319
  2. AUGMENTIN '125' [Concomitant]
     Route: 065
  3. CLARITIN [Concomitant]
     Route: 065
  4. BIAXIN [Concomitant]
     Route: 065
  5. DARVOCET-N 50 [Concomitant]
     Route: 065
  6. LIPITOR [Concomitant]
     Route: 065
  7. LEVAQUIN [Concomitant]
     Route: 065
  8. METOPROLOL [Concomitant]
     Route: 065
  9. NIASPAN [Concomitant]
     Route: 065
  10. ZESTRIL [Concomitant]
     Route: 065
  11. PLAVIX [Concomitant]
     Route: 065

REACTIONS (5)
  - ACUTE MYOCARDIAL INFARCTION [None]
  - BRONCHOSPASM [None]
  - DEPRESSION [None]
  - DRUG HYPERSENSITIVITY [None]
  - DYSPNOEA [None]
